FAERS Safety Report 5530952-8 (Version None)
Quarter: 2007Q4

REPORT INFORMATION
  Report Type: 
  Country: None (occurrence: None)
  Receive Date: 20071130
  Receipt Date: 20071122
  Transmission Date: 20080405
  Serious: Yes (Hospitalization)
  Sender: FDA-Public Use
  Company Number: BR-ABBOTT-06P-020-0343343-00

PATIENT
  Sex: Female

DRUGS (4)
  1. HUMIRA [Suspect]
     Indication: JUVENILE ARTHRITIS
     Route: 058
     Dates: start: 20050801, end: 20060701
  2. HUMIRA [Suspect]
     Route: 058
     Dates: end: 20061010
  3. HUMIRA [Suspect]
     Route: 058
  4. CHLOROQUINE PHOSPHATE [Concomitant]
     Indication: DRUG USE FOR UNKNOWN INDICATION

REACTIONS (2)
  - INTERVERTEBRAL DISC DISORDER [None]
  - PNEUMONIA [None]
